FAERS Safety Report 8929925 (Version 1)
Quarter: 2012Q4

REPORT INFORMATION
  Report Type: 
  Country: IT (occurrence: IT)
  Receive Date: 20121128
  Receipt Date: 20121128
  Transmission Date: 20130627
  Serious: Yes (Other)
  Sender: FDA-Public Use
  Company Number: PHHY2012IT108803

PATIENT
  Age: 35 Year
  Sex: Male

DRUGS (1)
  1. AMOXICILLIN+CLAVULANATE [Suspect]
     Indication: TOOTH ABSCESS
     Dosage: 1 posological unit in total
     Route: 048
     Dates: start: 20120816, end: 20120816

REACTIONS (2)
  - Dyspnoea [Recovering/Resolving]
  - Rash pruritic [Recovering/Resolving]
